FAERS Safety Report 4885696-2 (Version None)
Quarter: 2005Q4

REPORT INFORMATION
  Report Type: 
  Country: None (occurrence: None)
  Receive Date: 20051220
  Receipt Date: 20050719
  Transmission Date: 20060501
  Serious: Yes (Hospitalization, Other)
  Sender: FDA-Public Use
  Company Number: HQWYE298520JUL05

PATIENT
  Age: 28 Year
  Sex: Male

DRUGS (3)
  1. EFFEXOR XR [Suspect]
     Indication: DEPRESSION
     Dosage: OVERDOSE AMOUNT UNKNOWN, ORAL
     Route: 048
     Dates: start: 20050713, end: 20050713
  2. OLANZAPEM (OLANZAPEM) [Concomitant]
  3. FLUOXETINE [Concomitant]

REACTIONS (2)
  - INTENTIONAL OVERDOSE [None]
  - SUICIDE ATTEMPT [None]
